FAERS Safety Report 8983972 (Version 1)
Quarter: 2012Q4

REPORT INFORMATION
  Report Type: Spontaneous
  Country: US (occurrence: None)
  Receive Date: 20121212
  Receipt Date: 20121212
  Transmission Date: 20130627
  Serious: Yes (Hospitalization, Other)
  Sender: FDA-Public Use
  Company Number: AUR-APL-2012-05264

PATIENT
  Age: 50 Year
  Sex: Male

DRUGS (4)
  1. LEVETIRACETAM [Suspect]
     Indication: DRUG USE FOR UNKNOWN INDICATION
     Dosage: (1000 mg, 2 in 1 D)
     Route: 048
  2. GABAPENTIN (GABAPENTIN) [Concomitant]
  3. VALPROIC ACID (VALPROIC ACID) [Concomitant]
  4. ESOMEPRAZOLE (ESOMEPRAZOLE) [Concomitant]

REACTIONS (8)
  - Psychotic disorder [None]
  - Anxiety [None]
  - Agitation [None]
  - Formication [None]
  - Pruritus [None]
  - Scratch [None]
  - Emotional distress [None]
  - Incorrect dose administered [None]
